FAERS Safety Report 8287263-X (Version None)
Quarter: 2012Q2

REPORT INFORMATION
  Report Type: 
  Country: None (occurrence: None)
  Receive Date: 20120416
  Receipt Date: 20120416
  Transmission Date: 20120825
  Serious: Yes (Hospitalization)
  Sender: FDA-Public Use
  Company Number: None

PATIENT
  Age: 54 Year
  Sex: Female

DRUGS (2)
  1. TRUVADA [Concomitant]
  2. VALTREX [Suspect]

REACTIONS (6)
  - CHEST PAIN [None]
  - NAUSEA [None]
  - POLLAKIURIA [None]
  - RENAL FAILURE [None]
  - NOCTURIA [None]
  - URINE ABNORMALITY [None]
